FAERS Safety Report 9251936 (Version 1)
Quarter: 2013Q1

REPORT INFORMATION
  Report Type: Spontaneous
  Country: US (occurrence: None)
  Receive Date: 20130305
  Receipt Date: 20130305
  Transmission Date: 20140127
  Serious: Yes (Other)
  Sender: FDA-Public Use
  Company Number: 163-21880-12083442

PATIENT
  Age: 81 Year
  Sex: Female
  Weight: 49.44 kg

DRUGS (15)
  1. REVLIMID [Suspect]
     Indication: PLASMA CELL MYELOMA
     Dosage: 21 IN 28 D
     Route: 048
     Dates: start: 200904
  2. ZOMETA(ZOLEDRONIC ACID)(UNKNOWN) [Concomitant]
  3. CHLORHEXIDINE GLUCONATE(CHLORHEXIDINE GLUCONATE)(0.12 PERCENT, UNKNOWN) [Concomitant]
  4. ATORVASTATIN(ATORVASTATIN)(10 MILLIGRAM, TABLETS) [Concomitant]
  5. KLOR-CON(POTASSIUM CHLORIDE)(20 MILLIEQUIVALENTS, UNKNOWN) [Concomitant]
  6. HYDROCHLOROTHIAZIDE(HYDROCHLOROTHIAZIDE)(12.5 MILLIGRAM, CAPSULES) [Concomitant]
  7. METOPROLOL XL(METOPROLOL)(100 MILLIGRAM, TABLETS) [Concomitant]
  8. DEXAMETHASONE(DEXAMETHASONE)(4 MILLIGRAM, TABLETS) [Concomitant]
  9. ASPIRIN(ACETYLSALICYLIC ACID) (81 MILLIGRAM, TABLETS) [Concomitant]
  10. CENTRUM SILVER(CENTRUM SILVER)(TABLETS) [Concomitant]
  11. FAMVIR(FAMCICLOVIR)(UNKNOWN) [Concomitant]
  12. ACYCLOVIR(ACICLOVIR)(UNKNOWN) [Concomitant]
  13. ACYCLOVIR(ACICLOVIR)(UNKNOWN) [Concomitant]
  14. MAGIC MOUTHWASH(ALL OTHER THERAPEUTIC PRODUCTS)(UNKNOWN) [Concomitant]
  15. LIPITOR(ATORVASTATIN)(UNKNOWN) [Concomitant]

REACTIONS (7)
  - Poor quality sleep [None]
  - Diarrhoea [None]
  - Contusion [None]
  - Fatigue [None]
  - Anaemia [None]
  - Thrombocytopenia [None]
  - Pain in extremity [None]
